FAERS Safety Report 7585658-0 (Version None)
Quarter: 2011Q2

REPORT INFORMATION
  Report Type: 
  Country: None (occurrence: None)
  Receive Date: 20110627
  Receipt Date: 20110627
  Transmission Date: 20111010
  Serious: No
  Sender: FDA-Public Use
  Company Number: None

PATIENT

DRUGS (1)
  1. VALIUM [Suspect]

REACTIONS (6)
  - DIARRHOEA [None]
  - PRODUCT SUBSTITUTION ISSUE [None]
  - RASH [None]
  - MUSCLE SPASMS [None]
  - TREATMENT FAILURE [None]
  - NAUSEA [None]
